FAERS Safety Report 12768883 (Version 2)
Quarter: 2016Q4

REPORT INFORMATION
  Report Type: Spontaneous
  Country: US (occurrence: US)
  Receive Date: 20160921
  Receipt Date: 20161027
  Transmission Date: 20170207
  Serious: Yes (Hospitalization, Other)
  Sender: FDA-Public Use
  Company Number: PHEH2016US024057

PATIENT
  Age: 69 Year
  Sex: Male

DRUGS (2)
  1. TOPROL XL [Concomitant]
     Active Substance: METOPROLOL SUCCINATE
     Indication: ATRIAL FIBRILLATION
     Dosage: UNK
     Route: 065
  2. TASIGNA [Suspect]
     Active Substance: NILOTINIB
     Indication: CHRONIC MYELOID LEUKAEMIA
     Dosage: 600 MG, UNK
     Route: 065
     Dates: start: 201604, end: 20160719

REACTIONS (8)
  - Dyspnoea [Unknown]
  - Pleural effusion [Unknown]
  - Aphasia [Unknown]
  - Cerebrovascular accident [Unknown]
  - Pyrexia [Unknown]
  - Myocardial infarction [Unknown]
  - Angina pectoris [Unknown]
  - Confusional state [Unknown]

NARRATIVE: CASE EVENT DATE: 20160919
